FAERS Safety Report 9767211 (Version 2)
Quarter: 2014Q1

REPORT INFORMATION
  Report Type: Spontaneous
  Country: ES (occurrence: None)
  Receive Date: 20131213
  Receipt Date: 20140318
  Transmission Date: 20141002
  Serious: Yes (Hospitalization, Other)
  Sender: FDA-Public Use
  Company Number: 2013ES0390

PATIENT
  Age: 35 Year
  Sex: Male

DRUGS (3)
  1. ANAKINRA [Suspect]
     Indication: JUVENILE IDIOPATHIC ARTHRITIS
     Dates: start: 20130918, end: 20130927
  2. CORTICOSTEROIDS(CORTICOSTEROIDS) [Concomitant]
  3. ANTIBIOTICS (ANTIBIOTICS) [Concomitant]

REACTIONS (9)
  - Appendicitis [None]
  - Cholecystitis [None]
  - Ileus paralytic [None]
  - Cytomegalovirus enterocolitis [None]
  - Lung disorder [None]
  - Diarrhoea [None]
  - Serositis [None]
  - Neutrophilia [None]
  - Pneumonitis [None]
